FAERS Safety Report 8952946 (Version 1)
Quarter: 2012Q4

REPORT INFORMATION
  Report Type: 
  Country: US (occurrence: US)
  Receive Date: 20121203
  Receipt Date: 20121203
  Transmission Date: 20130627
  Serious: Yes (Hospitalization, Other)
  Sender: FDA-Public Use
  Company Number: US-AMGEN-USASP2012076498

PATIENT
  Sex: Female

DRUGS (1)
  1. ENBREL [Suspect]
     Indication: RHEUMATOID ARTHRITIS
     Dosage: 50 mg, qwk
     Dates: start: 20040601

REACTIONS (4)
  - HELLP syndrome [Recovered/Resolved]
  - Pre-eclampsia [Recovered/Resolved]
  - Renal failure [Unknown]
  - Hepatic failure [Unknown]
